FAERS Safety Report 16774517 (Version 2)
Quarter: 2019Q4

REPORT INFORMATION
  Report Type: Spontaneous
  Country: CA (occurrence: CA)
  Receive Date: 20190905
  Receipt Date: 20191002
  Transmission Date: 20200122
  Serious: Yes (Other)
  Sender: FDA-Public Use
  Company Number: CA-ORION CORPORATION ORION PHARMA-TREX2019-2973

PATIENT
  Age: 62 Year
  Sex: Female

DRUGS (4)
  1. PLAQUENIL [Concomitant]
     Active Substance: HYDROXYCHLOROQUINE SULFATE
     Dosage: 400 (UNIT NOT SPECIFIED)
     Route: 065
     Dates: start: 2017
  2. METHOTREXATE (TRADE NAME UNKNOWN) [Suspect]
     Active Substance: METHOTREXATE
     Indication: PRODUCT USED FOR UNKNOWN INDICATION
     Route: 048
     Dates: start: 2017, end: 201906
  3. CELEBREX [Concomitant]
     Active Substance: CELECOXIB
     Route: 048
     Dates: start: 2016
  4. METHOTREXATE (TRADE NAME UNKNOWN) [Suspect]
     Active Substance: METHOTREXATE
     Dosage: 20
     Route: 058
     Dates: start: 2017, end: 201906

REACTIONS (6)
  - Drug intolerance [Unknown]
  - Headache [Recovered/Resolved]
  - Arthritis [Unknown]
  - Dysgeusia [Recovered/Resolved]
  - Ankle fracture [Unknown]
  - Malaise [Unknown]

NARRATIVE: CASE EVENT DATE: 20190529
